FAERS Safety Report 8332150-1 (Version None)
Quarter: 2012Q2

REPORT INFORMATION
  Report Type: 
  Country: None (occurrence: None)
  Receive Date: 20120503
  Receipt Date: 20120425
  Transmission Date: 20120825
  Serious: Yes (Hospitalization)
  Sender: FDA-Public Use
  Company Number: AR-BRISTOL-MYERS SQUIBB COMPANY-16547192

PATIENT
  Age: 76 Year
  Sex: Female

DRUGS (9)
  1. ZOLEDRONIC [Concomitant]
  2. PAROXETINE [Suspect]
     Dosage: TAB
  3. PHENOBARBITAL TAB [Suspect]
     Dosage: TAB
  4. MOSAPRIDE [Concomitant]
  5. RAMIPRIL [Concomitant]
  6. CLONAZEPAM [Suspect]
     Dosage: TAB
  7. ABATACEPT [Suspect]
     Indication: RHEUMATOID ARTHRITIS
     Route: 042
     Dates: start: 20071210
  8. PANTOPRAZOLE [Concomitant]
  9. ALCOHOL [Concomitant]
     Dosage: INGESTED

REACTIONS (2)
  - SUICIDE ATTEMPT [None]
  - COMA [None]
